FAERS Safety Report 26073036 (Version 1)
Quarter: 2025Q4

REPORT INFORMATION
  Report Type: Spontaneous
  Country: CN (occurrence: CN)
  Receive Date: 20251121
  Receipt Date: 20251121
  Transmission Date: 20260118
  Serious: Yes (Life-Threatening, Other)
  Sender: ACCORD
  Company Number: CN-Accord-514159

PATIENT
  Age: 55 Year
  Sex: Male

DRUGS (5)
  1. AZACITIDINE [Suspect]
     Active Substance: AZACITIDINE
     Indication: T-cell type acute leukaemia
     Dosage: D1-D7
     Route: 058
  2. TUCIDINOSTAT [Suspect]
     Active Substance: TUCIDINOSTAT
     Indication: T-cell type acute leukaemia
     Route: 048
  3. VENETOCLAX [Suspect]
     Active Substance: VENETOCLAX
     Indication: T-cell type acute leukaemia
     Dosage: D1
     Route: 048
  4. VENETOCLAX [Suspect]
     Active Substance: VENETOCLAX
     Indication: T-cell type acute leukaemia
     Dosage: D2
     Route: 048
  5. VENETOCLAX [Suspect]
     Active Substance: VENETOCLAX
     Indication: T-cell type acute leukaemia
     Dosage: D3-D14
     Route: 048

REACTIONS (5)
  - Neutropenia [Recovered/Resolved]
  - Thrombocytopenia [Recovered/Resolved]
  - Pneumonia [Recovered/Resolved]
  - Anaemia [Recovered/Resolved]
  - Abdominal infection [Recovered/Resolved]
